FAERS Safety Report 11164118 (Version 1)
Quarter: 2015Q2

REPORT INFORMATION
  Report Type: Spontaneous
  Country: DE (occurrence: None)
  Receive Date: 20150602
  Receipt Date: 20150602
  Transmission Date: 20150821
  Serious: Yes (Hospitalization, Other)
  Sender: FDA-Public Use
  Company Number: DE2015GSK070542

PATIENT
  Age: 21 Year

DRUGS (8)
  1. FENOTEROL HYDROBROMIDE [Suspect]
     Active Substance: FENOTEROL HYDROBROMIDE
     Indication: ASTHMA
  2. TIVICAY [Suspect]
     Active Substance: DOLUTEGRAVIR SODIUM
     Indication: HIV INFECTION
  3. TRUVADA [Suspect]
     Active Substance: EMTRICITABINE\TENOFOVIR DISOPROXIL FUMARATE
     Indication: HIV INFECTION
     Dosage: 20 UNKN, UNKN
  4. ALCOHOL. [Suspect]
     Active Substance: ALCOHOL
  5. IPRATROPIUM BROMIDE (IPRATROPIUM BROMIDE) [Concomitant]
  6. DOXYCYCLINE. [Concomitant]
     Active Substance: DOXYCYCLINE
  7. BENZATHINE PENCILLIN (BENZATHINE BENZYLPENCILLIN) [Concomitant]
  8. COCAINE [Suspect]
     Active Substance: COCAINE

REACTIONS (3)
  - Suicide attempt [None]
  - Overdose [None]
  - Obstructive airways disorder [None]
